FAERS Safety Report 6165081-6 (Version None)
Quarter: 2009Q2

REPORT INFORMATION
  Report Type: 
  Country: None (occurrence: None)
  Receive Date: 20090421
  Receipt Date: 20090406
  Transmission Date: 20091009
  Serious: Yes (Other)
  Sender: FDA-Public Use
  Company Number: 2009S1006155

PATIENT
  Age: 64 Year
  Sex: Male
  Weight: 95.7 kg

DRUGS (7)
  1. OMEPRAZOLE [Suspect]
     Indication: DYSPEPSIA
     Dates: start: 20060101, end: 20080801
  2. ADALAT (CON.) [Concomitant]
  3. ASPIRIN (CON.) [Concomitant]
  4. ATORVASTATIN (CON.) [Concomitant]
  5. FUROSEMIDE (CON.) [Concomitant]
  6. PERINDOPRIL (CON.) [Concomitant]
  7. ATENOLOL (CON.) [Concomitant]

REACTIONS (1)
  - BLOOD MAGNESIUM DECREASED [None]
